FAERS Safety Report 14203733 (Version 1)
Quarter: 2017Q4

REPORT INFORMATION
  Report Type: Spontaneous
  Country: US (occurrence: US)
  Receive Date: 20171120
  Receipt Date: 20171120
  Transmission Date: 20180321
  Serious: No
  Sender: FDA-Public Use
  Company Number: US-PFIZER INC-2017496643

PATIENT
  Age: 60 Year
  Sex: Female
  Weight: 81 kg

DRUGS (1)
  1. AROMASIN [Suspect]
     Active Substance: EXEMESTANE
     Indication: BREAST CANCER RECURRENT
     Dosage: 25 MG, DAILY
     Route: 048
     Dates: start: 201706

REACTIONS (2)
  - Scar [Unknown]
  - Benign breast neoplasm [Recovered/Resolved with Sequelae]

NARRATIVE: CASE EVENT DATE: 20171027
